FAERS Safety Report 8340828-9 (Version None)
Quarter: 2012Q2

REPORT INFORMATION
  Report Type: 
  Country: None (occurrence: None)
  Receive Date: 20120503
  Receipt Date: 20120503
  Transmission Date: 20120825
  Serious: Yes (Other)
  Sender: FDA-Public Use
  Company Number: None

PATIENT
  Sex: Male
  Weight: 115.2136 kg

DRUGS (1)
  1. ALLOPURINOL [Suspect]
     Indication: RASH PRURITIC
     Dosage: 100MG DAILY PO
     Route: 048

REACTIONS (2)
  - PRURITUS [None]
  - RASH [None]
